FAERS Safety Report 22071834 (Version 1)
Quarter: 2023Q1

REPORT INFORMATION
  Report Type: Other
  Country: GB (occurrence: GB)
  Receive Date: 20230307
  Receipt Date: 20230307
  Transmission Date: 20230417
  Serious: Yes (Hospitalization, Other)
  Sender: FDA-Public Use
  Company Number: GB-CELLTRION INC.-2023GB004695

PATIENT

DRUGS (85)
  1. TRASTUZUMAB [Suspect]
     Active Substance: TRASTUZUMAB
     Indication: Breast cancer
     Dosage: 462 MG ( LOADING DOSE)(CUMULATIVE DOSE TO FIRST REACTION: 20349 MG)
     Route: 042
     Dates: start: 20150506, end: 20150506
  2. TRASTUZUMAB [Suspect]
     Active Substance: TRASTUZUMAB
     Dosage: 1071 MG, Q3W (CUMULATIVE DOSE TO FIRST REACTION: 20349MG)
     Route: 042
     Dates: start: 20150527, end: 20160630
  3. TRASTUZUMAB [Suspect]
     Active Substance: TRASTUZUMAB
     Dosage: 357 MG, Q3W (CUMULATIVE DOSE TO FIRST REACTION: 20349 MG)
     Route: 042
     Dates: start: 20170620
  4. ANASTROZOLE [Suspect]
     Active Substance: ANASTROZOLE
     Indication: Breast cancer
     Dosage: 1 MG, QD
     Route: 048
     Dates: start: 20151021, end: 20171027
  5. CAPECITABINE [Suspect]
     Active Substance: CAPECITABINE
     Indication: Breast cancer
     Dosage: 1650 MILLIGRAM
     Route: 042
     Dates: start: 20150901, end: 20160914
  6. CAPECITABINE [Suspect]
     Active Substance: CAPECITABINE
     Dosage: 3300 MILLIGRAM
     Route: 042
     Dates: start: 20150901, end: 20160914
  7. DOCETAXEL [Suspect]
     Active Substance: DOCETAXEL
     Indication: Breast cancer
     Dosage: 130 MG, Q3W 1 DOSE/3 WEEKS
     Route: 042
     Dates: start: 20150507
  8. EXEMESTANE [Suspect]
     Active Substance: EXEMESTANE
     Indication: Breast cancer
     Dosage: 25 MG, QD (CUMULATIVE DOSE TO FIRST REACTION: 51375.0 MG)
     Route: 048
     Dates: start: 20090921
  9. EXEMESTANE [Suspect]
     Active Substance: EXEMESTANE
     Dosage: 25 NG, QD (1/DAY)  (CUMULATIVE DOSE TO FIRST REACTION: 4150.0 NG)
     Route: 048
     Dates: start: 20151021
  10. EXEMESTANE [Suspect]
     Active Substance: EXEMESTANE
     Dosage: 1 DOSAGE FORM, DAILY
     Route: 048
     Dates: start: 201607
  11. EXEMESTANE [Suspect]
     Active Substance: EXEMESTANE
     Dosage: 25 MG, QD (CUMULATIVE DOSE TO FIRST REACTION: 1023.9583 MG)
     Route: 048
     Dates: start: 20150328
  12. HERCEPTIN [Suspect]
     Active Substance: TRASTUZUMAB
     Indication: Breast cancer
     Dosage: 462 MG (LOADING DOSE 3/WEEK (CV))
     Route: 042
     Dates: start: 20150506, end: 20150506
  13. HERCEPTIN [Suspect]
     Active Substance: TRASTUZUMAB
     Dosage: 1071 MG, QW (357 MG, EVERY 3 WEEKS, LAST DOSE N 30 JUN 2016)
     Route: 042
  14. NAVELBINE [Suspect]
     Active Substance: VINORELBINE TARTRATE
     Indication: Breast cancer
     Dosage: 100 MG (FROM 01 SEP 2016)
     Route: 048
     Dates: start: 20161028
  15. PERTUZUMAB [Suspect]
     Active Substance: PERTUZUMAB
     Indication: Breast cancer
     Dosage: 2520 MG (LOADING DOSE)
     Route: 042
     Dates: start: 20150507, end: 20150507
  16. PERTUZUMAB [Suspect]
     Active Substance: PERTUZUMAB
     Dosage: 420 MG, Q3W 1 DOSE/3 WEEKS, EVERY 3 WEEKS (CUMULATIVE DOSE TO FIRST REACTION: 380.0 MG)
     Route: 042
     Dates: start: 20150527, end: 20160630
  17. PERTUZUMAB [Suspect]
     Active Substance: PERTUZUMAB
     Dosage: 840 MG, Q3W (LOADING DOSE) (CUMULATIVE DOSE TO FIRST REACTION: 40.0 MG)
     Route: 042
     Dates: start: 20150507, end: 20150507
  18. PERTUZUMAB [Suspect]
     Active Substance: PERTUZUMAB
     Dosage: 420 MG, Q3W UNK, LOADING DOSE 3/WEEK (CV)(CUMULATIVE DOSE TO FIRST REACTION: 8380.0 MG)
     Route: 042
     Dates: start: 20160630
  19. TAXOTERE [Suspect]
     Active Substance: DOCETAXEL
     Indication: Breast cancer
     Dosage: 130 MG, Q3W (CUMULATIVE DOSE TO FIRST REACTION: 6.1904764 MG)
     Route: 042
     Dates: start: 20150507, end: 20150903
  20. TAXOTERE [Suspect]
     Active Substance: DOCETAXEL
     Dosage: 130 MG, Q3W (CUMULATIVE DOSE TO FIRST REACTION: 730.4762 MG)
     Route: 042
     Dates: start: 20150903
  21. ADO-TRASTUZUMAB EMTANSINE [Suspect]
     Active Substance: ADO-TRASTUZUMAB EMTANSINE
     Indication: Breast cancer
     Dosage: 462 MG, QW CUMULATIVE DOSE TO FIRST REACTION: 132.0 MG)
     Route: 042
     Dates: start: 20150506, end: 20150506
  22. ADO-TRASTUZUMAB EMTANSINE [Suspect]
     Active Substance: ADO-TRASTUZUMAB EMTANSINE
     Dosage: 357 MG, QW (CUMULATIVE DOSE TO FIRST REACTION: 969 MG)
     Route: 042
     Dates: start: 20150527, end: 20160630
  23. ADO-TRASTUZUMAB EMTANSINE [Suspect]
     Active Substance: ADO-TRASTUZUMAB EMTANSINE
     Dosage: 224 MG, Q3W (CUMULATIVE DOSE TO FIRST REACTION: 8256.0 MG)
     Route: 042
     Dates: start: 20170620, end: 20170830
  24. ADO-TRASTUZUMAB EMTANSINE [Suspect]
     Active Substance: ADO-TRASTUZUMAB EMTANSINE
     Dosage: 1 OT, QW (20 JUN 2017)
     Route: 042
     Dates: start: 20170830
  25. VINORELBINE TARTRATE [Suspect]
     Active Substance: VINORELBINE TARTRATE
     Indication: Breast cancer
     Dosage: 100 MG, QD OU (CUMULATIVE DOSE TO FIRST REACTION: 2100 MG)
     Route: 048
     Dates: start: 20160901, end: 20160930
  26. VINORELBINE TARTRATE [Suspect]
     Active Substance: VINORELBINE TARTRATE
     Dosage: 100 MG, QD (1/DAY) (CUMULATIVE DOSE TO FIRST REACTION: 2100 MG)
     Route: 048
     Dates: start: 20161028, end: 20161028
  27. VINORELBINE TARTRATE [Suspect]
     Active Substance: VINORELBINE TARTRATE
     Dosage: 100 MG, QD (CUMULATIVE DOSE TO FIRST REACTION: 2100 MG)
     Route: 048
     Dates: start: 20161111
  28. XELODA [Suspect]
     Active Substance: CAPECITABINE
     Indication: Breast cancer
     Dosage: 3300 MILLIGRAM
     Route: 048
     Dates: start: 20160901, end: 20160914
  29. XELODA [Suspect]
     Active Substance: CAPECITABINE
     Dosage: 3300 MG (FROM 01 SEP 2016)
     Route: 048
     Dates: start: 20160901, end: 20160914
  30. CALCIUM CARBONATE\CHOLECALCIFEROL [Concomitant]
     Active Substance: CALCIUM CARBONATE\CHOLECALCIFEROL
     Indication: Product used for unknown indication
     Dosage: UNK
     Route: 048
     Dates: start: 20171027
  31. APREPITANT [Concomitant]
     Active Substance: APREPITANT
     Indication: Prophylaxis
     Dosage: ROUTE:065
     Dates: start: 20150527, end: 20150905
  32. ARIMIDEX [Concomitant]
     Active Substance: ANASTROZOLE
     Indication: Product used for unknown indication
     Dosage: UNK
  33. BECLOMETHASONE DIPROPIONATE [Concomitant]
     Active Substance: BECLOMETHASONE DIPROPIONATE
     Indication: Wheezing
     Dosage: UNK
     Dates: end: 20160108
  34. CALAMINE [Concomitant]
     Active Substance: CALAMINE\FERRIC OXIDE RED\ZINC OXIDE
     Indication: Product used for unknown indication
     Dosage: UNK, PRN (1 APPLICATION, AS NEEDED)
     Dates: start: 20150915, end: 20151021
  35. CALCIUM GLUCONATE [Concomitant]
     Active Substance: CALCIUM GLUCONATE
     Indication: Product used for unknown indication
     Dosage: ROUTE:065
     Dates: end: 20170201
  36. CODEINE PHOSPHATE [Concomitant]
     Active Substance: CODEINE PHOSPHATE
     Indication: Product used for unknown indication
     Dosage: 60 MG, QD (QDS AS NEEDED) (CUMULATIVE DOSE TO FIRST REACTION: 1560.0 MG)
     Dates: start: 20150603
  37. CYCLIZINE [Concomitant]
     Active Substance: CYCLIZINE
     Indication: Prophylaxis
     Dosage: 150 MG, QD (CUMULATIVE DOSE TO FIRST REACTION: 6450 MG)
     Route: 048
     Dates: start: 20150603, end: 20150715
  38. DEXAMETHASONE [Concomitant]
     Active Substance: DEXAMETHASONE
     Indication: Premedication
     Dosage: 8 MG (ROUTE: 065) (CUMULATIVE DOSE TO FIRST REACTION: 197 DF)
     Route: 048
     Dates: start: 20150504, end: 20150904
  39. DEXAMETHASONE [Concomitant]
     Active Substance: DEXAMETHASONE
     Dosage: 1 DOSAGE FORM, QD (CUMULATIVE DOSE TO FIRST REACTION: 197 DF) (ROUTE: 065)
     Route: 048
     Dates: start: 20150504, end: 20150904
  40. DEXAMETHASONE [Concomitant]
     Active Substance: DEXAMETHASONE
     Dosage: 1 DOSAGE FORM, QD (CUMULATIVE DOSE TO FIRST REACTION: 197 DF) (ROUTE: 065)
     Route: 048
     Dates: start: 20150506, end: 20150717
  41. DEXAMETHASONE [Concomitant]
     Active Substance: DEXAMETHASONE
     Dosage: UNK (CUMULATIVE DOSE TO FIRST REACTION: 197 DF) (ROUTE: 065)
     Route: 048
     Dates: start: 20150506, end: 20150717
  42. DEXAMETHASONE [Concomitant]
     Active Substance: DEXAMETHASONE
     Dosage: 1 DF, QD (1/DAY) (ROUTE: 065) (CUMULATIVE DOSE TO FIRST REACTION: 197 DF)
     Route: 048
     Dates: start: 201607, end: 20160921
  43. DEXAMETHASONE [Concomitant]
     Active Substance: DEXAMETHASONE
     Dosage: 2 MG (CUMULATIVE DOSE TO FIRST REACTION: 197 DF) (ROUTE: 065)
     Route: 048
     Dates: start: 20160713, end: 20161004
  44. DEXAMETHASONE [Concomitant]
     Active Substance: DEXAMETHASONE
     Dosage: 1 DOSAGE FORM, QD (CUMULATIVE DOSE TO FIRST REACTION: 197 DF) (ROUTE: 065)
     Route: 048
     Dates: start: 20160713, end: 201607
  45. DEXAMETHASONE [Concomitant]
     Active Substance: DEXAMETHASONE
     Dosage: UNK (CUMULATIVE DOSE TO FIRST REACTION: 197 DF) (ROUTE: 065)
     Route: 048
     Dates: start: 20160713, end: 201707
  46. DEXAMETHASONE [Concomitant]
     Active Substance: DEXAMETHASONE
     Dosage: 2 MG, (CUMULATIVE DOSE TO FIRST REACTION: 197 DF) (ROUTE: 065)
     Route: 048
     Dates: start: 20161004, end: 20161123
  47. DEXAMETHASONE [Concomitant]
     Active Substance: DEXAMETHASONE
     Dosage: 1 DOSAGE FORM, QD (CUMULATIVE DOSE TO FIRST REACTION: 197 DF) (ROUTE: 065)
     Route: 048
     Dates: start: 20161004, end: 20161123
  48. DEXAMETHASONE [Concomitant]
     Active Substance: DEXAMETHASONE
     Dosage: 2 MILLIGRAM (CUMULATIVE DOSE TO FIRST REACTION: 197 DF) (ROUTE: 065)
     Dates: start: 20161014
  49. DEXAMETHASONE [Concomitant]
     Active Substance: DEXAMETHASONE
     Dosage: 1 DOSAGE FORM, QD (CUMULATIVE DOSE TO FIRST REACTION: 197 DF) (ROUTE: 065)
     Route: 048
     Dates: start: 20161123, end: 20161130
  50. DEXAMETHASONE [Concomitant]
     Active Substance: DEXAMETHASONE
     Dosage: 1 DOSAGE FORM, QD (CUMULATIVE DOSE TO FIRST REACTION: 197 DF) (ROUTE: 065)
     Route: 048
     Dates: start: 20161130, end: 20161201
  51. DEXAMETHASONE [Concomitant]
     Active Substance: DEXAMETHASONE
     Dosage: UNK (CUMULATIVE DOSE TO FIRST REACTION: 197 DF) (ROUTE: 065)
     Route: 048
     Dates: start: 20161130, end: 20161201
  52. DEXAMETHASONE [Concomitant]
     Active Substance: DEXAMETHASONE
     Dosage: 1 DOSAGE FORM, QD (CUMULATIVE DOSE TO FIRST REACTION: 197 DF) (ROUTE: 065)
     Route: 048
     Dates: start: 201612, end: 20170510
  53. DEXAMETHASONE [Concomitant]
     Active Substance: DEXAMETHASONE
     Dosage: UNK (CUMULATIVE DOSE TO FIRST REACTION: 197 DF) (ROUTE: 065)
     Route: 048
     Dates: start: 201612, end: 201612
  54. DEXAMETHASONE [Concomitant]
     Active Substance: DEXAMETHASONE
     Dosage: 1 DOSAGE FORM, QD (CUMULATIVE DOSE TO FIRST REACTION: 197 DF) (ROUTE: 065)
     Route: 048
     Dates: start: 201612, end: 201612
  55. DEXAMETHASONE [Concomitant]
     Active Substance: DEXAMETHASONE
     Dosage: (CUMULATIVE DOSE TO FIRST REACTION: 197 DF) (ROUTE: 065)
     Route: 048
     Dates: start: 20170216, end: 20170830
  56. DEXAMETHASONE [Concomitant]
     Active Substance: DEXAMETHASONE
     Dosage: 2 MG (CUMULATIVE DOSE TO FIRST REACTION: 197 DF) (ROUTE: 065)
     Route: 048
     Dates: start: 20170216, end: 20170830
  57. FLUCLOXACILLIN [Concomitant]
     Active Substance: FLUCLOXACILLIN
     Indication: Product used for unknown indication
     Dosage: 250 MG, Q3W (CUMULATIVE DOSE TO FIRST REACTION: 6000 MG)
     Route: 048
     Dates: start: 20150603, end: 20150610
  58. FLUCLOXACILLIN [Concomitant]
     Active Substance: FLUCLOXACILLIN
     Dosage: 750 MILLIGRAM, QD
  59. FLUCONAZOLE [Concomitant]
     Active Substance: FLUCONAZOLE
     Indication: Product used for unknown indication
     Dosage: UNK
     Dates: start: 20171004, end: 20171004
  60. GELCLAIR [HYALURONATE SODIUM;POVIDONE] [Concomitant]
     Indication: Product used for unknown indication
     Dosage: UNK, PRN
     Dates: start: 20150514, end: 20150615
  61. LANSOPRAZOLE [Concomitant]
     Active Substance: LANSOPRAZOLE
     Indication: Product used for unknown indication
     Dosage: UNK, (ROUTE:048)
     Route: 048
     Dates: start: 20150504, end: 20171027
  62. LEVETIRACETAM [Concomitant]
     Active Substance: LEVETIRACETAM
     Indication: Epilepsy
     Dosage: UNK (BID (2/DAY))
     Route: 048
     Dates: start: 20160727, end: 20160810
  63. LEVETIRACETAM [Concomitant]
     Active Substance: LEVETIRACETAM
     Dosage: UNK
     Route: 048
     Dates: start: 20160811, end: 20161027
  64. LEVETIRACETAM [Concomitant]
     Active Substance: LEVETIRACETAM
     Dosage: 250 MILLIGRAM
     Route: 048
     Dates: start: 20160627, end: 20171027
  65. LEVETIRACETAM [Concomitant]
     Active Substance: LEVETIRACETAM
     Dosage: 250 MILLIGRAM
     Route: 048
     Dates: start: 20160727, end: 20171027
  66. LOPERAMIDE [Concomitant]
     Active Substance: LOPERAMIDE
     Indication: Product used for unknown indication
     Dosage: 4 MILLIGRAM
     Dates: start: 20150514, end: 20150904
  67. METOCLOPRAMIDE [Concomitant]
     Active Substance: METOCLOPRAMIDE
     Indication: Product used for unknown indication
     Dosage: UNK (SUBSEQUENT DOSE RECEIVED ON 18/NOV/2016) (~~~~; ROUTE:048)
     Route: 042
     Dates: start: 20150506, end: 20150903
  68. METOCLOPRAMIDE [Concomitant]
     Active Substance: METOCLOPRAMIDE
     Dosage: UNK (~~~~; ROUTE:048)
     Route: 048
     Dates: start: 20161118
  69. METOCLOPRAMIDE [Concomitant]
     Active Substance: METOCLOPRAMIDE
     Dosage: 2 DOSAGE FORM QD, (SUBSEQUENT DOSE RECEIVED ON 18/NOV/2016) (~~~~; ROUTE:048) (CUMULATIVE DOSE TO FI
     Route: 048
     Dates: start: 20170301, end: 2017
  70. METOCLOPRAMIDE [Concomitant]
     Active Substance: METOCLOPRAMIDE
     Dosage: UNK (~~~~; ROUTE:048)
     Route: 048
     Dates: start: 20170815, end: 2017
  71. METOCLOPRAMIDE [Concomitant]
     Active Substance: METOCLOPRAMIDE
     Dosage: UNK SUBSEQUENT DOSE RECEIVED ON 18/NOV/2016 (~~~~; ROUTE:048)
     Route: 048
     Dates: start: 20150506, end: 2016
  72. METOCLOPRAMIDE [Concomitant]
     Active Substance: METOCLOPRAMIDE
     Dosage: 2 DOSAGE FORM, QD (~~~~; ROUTE:048) (CUMULATIVE DOSE TO FIRST REACTION: 1660.0 DF)
     Route: 048
     Dates: start: 20170815, end: 2017
  73. METOCLOPRAMIDE [Concomitant]
     Active Substance: METOCLOPRAMIDE
     Dosage: UNK (~~~~; ROUTE:048)
     Route: 048
  74. NITROFURANTOIN [Concomitant]
     Active Substance: NITROFURANTOIN
     Indication: Product used for unknown indication
     Dosage: UNK
     Dates: start: 20170621, end: 20170623
  75. ONDANSETRON HYDROCHLORIDE [Concomitant]
     Active Substance: ONDANSETRON HYDROCHLORIDE
     Indication: Product used for unknown indication
     Dosage: UNK, (~~~~; ROUTE:048)
     Route: 048
     Dates: start: 20150508, end: 20150904
  76. ONDANSETRON HYDROCHLORIDE [Concomitant]
     Active Substance: ONDANSETRON HYDROCHLORIDE
     Dosage: UNK, (~~~~; ROUTE:048)
     Route: 048
     Dates: start: 20161111, end: 2016
  77. PEGFILGRASTIM [Concomitant]
     Active Substance: PEGFILGRASTIM
     Indication: Product used for unknown indication
     Dosage: UNK
     Route: 058
     Dates: start: 20150506, end: 20150903
  78. CHLORPHENIRAMINE MALEATE [Concomitant]
     Active Substance: CHLORPHENIRAMINE MALEATE
     Indication: Product used for unknown indication
     Dosage: 5 MG, PRN
     Route: 048
     Dates: start: 20150725, end: 20151021
  79. VENTOLIN [Concomitant]
     Active Substance: ALBUTEROL SULFATE
     Indication: Wheezing
     Dosage: UNK
     Dates: start: 20170621, end: 2017
  80. HERBALS\SENNOSIDES [Concomitant]
     Active Substance: HERBALS\SENNOSIDES
  81. KEPPRA [Concomitant]
     Active Substance: LEVETIRACETAM
  82. TRIMETHOPRIM [Concomitant]
     Active Substance: TRIMETHOPRIM
  83. QUININE SULFATE [Concomitant]
     Active Substance: QUININE SULFATE
  84. RAMIPRIL [Concomitant]
     Active Substance: RAMIPRIL
  85. CHLORHEXIDINE GLUCONATE [Concomitant]
     Active Substance: CHLORHEXIDINE GLUCONATE

REACTIONS (34)
  - Poor peripheral circulation [Unknown]
  - Vaginal discharge [Recovered/Resolved]
  - Oropharyngeal pain [Recovered/Resolved]
  - Muscle twitching [Unknown]
  - Neuralgia [Not Recovered/Not Resolved]
  - Depressed mood [Not Recovered/Not Resolved]
  - Hiccups [Recovered/Resolved]
  - Fatigue [Not Recovered/Not Resolved]
  - Muscle spasms [Unknown]
  - Left ventricular dysfunction [Not Recovered/Not Resolved]
  - Weight decreased [Unknown]
  - Abdominal pain [Unknown]
  - Alopecia [Unknown]
  - Chest pain [Recovered/Resolved]
  - Constipation [Recovered/Resolved]
  - Cough [Recovered/Resolved]
  - Diarrhoea [Recovered/Resolved]
  - Diarrhoea [Recovered/Resolved]
  - Dizziness [Unknown]
  - Nail infection [Recovered/Resolved]
  - Headache [Recovered/Resolved]
  - Headache [Recovered/Resolved]
  - Mucosal inflammation [Unknown]
  - Nail disorder [Recovered/Resolved]
  - Nausea [Recovered/Resolved]
  - Nausea [Recovered/Resolved]
  - Neuropathy peripheral [Not Recovered/Not Resolved]
  - Neuropathy peripheral [Not Recovered/Not Resolved]
  - Palpitations [Not Recovered/Not Resolved]
  - Rash [Recovered/Resolved]
  - Seizure [Unknown]
  - Urinary tract infection [Recovered/Resolved]
  - Nasopharyngitis [Recovered/Resolved]
  - Lacrimation increased [Not Recovered/Not Resolved]

NARRATIVE: CASE EVENT DATE: 20150508
